FAERS Safety Report 15360676 (Version 2)
Quarter: 2018Q3

REPORT INFORMATION
  Report Type: Report from Study
  Country: US (occurrence: US)
  Receive Date: 20180907
  Receipt Date: 20180920
  Transmission Date: 20181010
  Serious: No
  Sender: FDA-Public Use
  Company Number: US-009507513-1808USA004588

PATIENT
  Sex: Female
  Weight: 145.13 kg

DRUGS (1)
  1. IMPLANON [Suspect]
     Active Substance: ETONOGESTREL
     Dosage: ONE ROD EVERY 3 YEARS, STRENGTH: 68 MG
     Route: 059
     Dates: start: 20161122

REACTIONS (2)
  - No adverse event [Unknown]
  - Device breakage [Not Recovered/Not Resolved]

NARRATIVE: CASE EVENT DATE: 2018
